FAERS Safety Report 26011537 (Version 1)
Quarter: 2025Q4

REPORT INFORMATION
  Report Type: Spontaneous
  Country: US (occurrence: None)
  Receive Date: 20251106
  Receipt Date: 20251106
  Transmission Date: 20260117
  Serious: Yes (Other)
  Sender: FDA-CTU
  Company Number: None

PATIENT
  Age: 41 Year
  Sex: Female
  Weight: 92.5 kg

DRUGS (3)
  1. CUTAQUIG [Suspect]
     Active Substance: HUMAN IMMUNOGLOBULIN G
     Indication: Immunoglobulins abnormal
     Dosage: OTHER FREQUENCY : EVERY WEEK;?
     Route: 058
     Dates: start: 20251103, end: 20251105
  2. CUTAQUIG [Suspect]
     Active Substance: HUMAN IMMUNOGLOBULIN G
     Indication: Immunoglobulins abnormal
     Dosage: OTHER FREQUENCY : EVERY WEEK;?
     Route: 058
     Dates: start: 20251103, end: 20251105
  3. Diphenhydramine 25mg po [Concomitant]
     Dates: start: 20251103, end: 20251103

REACTIONS (7)
  - Infusion related reaction [None]
  - Fatigue [None]
  - Pyrexia [None]
  - Pain [None]
  - Oral mucosal blistering [None]
  - Discomfort [None]
  - Headache [None]

NARRATIVE: CASE EVENT DATE: 20251103
